FAERS Safety Report 5935657-7 (Version None)
Quarter: 2008Q4

REPORT INFORMATION
  Report Type: 
  Country: None (occurrence: None)
  Receive Date: 20081028
  Receipt Date: 20081014
  Transmission Date: 20090506
  Serious: Yes (Other)
  Sender: FDA-Public Use
  Company Number: 08-002

PATIENT
  Age: 62 Year
  Sex: Male
  Weight: 90.2658 kg

DRUGS (3)
  1. CETACAINE SPRAY [Suspect]
     Indication: ANAESTHESIA
     Dosage: 3-4 SEC ICH CODE 060
     Dates: start: 20081013
  2. CETACAINE SPRAY [Suspect]
     Indication: OESOPHAGOGASTRODUODENOSCOPY
     Dosage: 3-4 SEC ICH CODE 060
     Dates: start: 20081013
  3. LIDOCAINE LOLLIPOP [Concomitant]

REACTIONS (7)
  - DYSPNOEA [None]
  - INCORRECT DOSE ADMINISTERED [None]
  - INJURY [None]
  - OROPHARYNGEAL PAIN [None]
  - PHARYNGEAL OEDEMA [None]
  - THROAT IRRITATION [None]
  - THROAT TIGHTNESS [None]
